FAERS Safety Report 9016992 (Version 1)
Quarter: 2013Q1

REPORT INFORMATION
  Report Type: Spontaneous
  Country: US (occurrence: US)
  Receive Date: 20130117
  Receipt Date: 20130117
  Transmission Date: 20140127
  Serious: Yes (Hospitalization, Other)
  Sender: FDA-Public Use
  Company Number: US-009507513-1301USA004161

PATIENT
  Sex: Male

DRUGS (6)
  1. SINGULAIR [Suspect]
     Indication: ASTHMA
     Dosage: UNK
  2. SORIATANE [Suspect]
     Indication: PSORIASIS
     Dosage: UNK
  3. ADVAIR [Suspect]
     Indication: ASTHMA
  4. ASPIRIN [Suspect]
     Indication: ANTIPLATELET THERAPY
  5. ASPIRIN [Suspect]
     Indication: DYSLIPIDAEMIA
  6. VERSED [Concomitant]

REACTIONS (6)
  - Ventricular hypokinesia [Unknown]
  - Weight decreased [Unknown]
  - Myocardial infarction [Unknown]
  - Hypotension [Unknown]
  - Dyslipidaemia [Unknown]
  - Epistaxis [Unknown]
